FAERS Safety Report 17075957 (Version 4)
Quarter: 2021Q3

REPORT INFORMATION
  Report Type: Spontaneous
  Country: US (occurrence: US)
  Receive Date: 20191126
  Receipt Date: 20210723
  Transmission Date: 20211014
  Serious: Yes (Hospitalization, Other)
  Sender: FDA-Public Use
  Company Number: US-GILEAD-2019-0439503

PATIENT
  Age: 53 Year
  Sex: Male
  Weight: 91.61 kg

DRUGS (44)
  1. EPZICOM [Concomitant]
     Active Substance: ABACAVIR SULFATE\LAMIVUDINE
  2. TESTOSTERONE CYPIONATE. [Concomitant]
     Active Substance: TESTOSTERONE CYPIONATE
  3. COREG [Concomitant]
     Active Substance: CARVEDILOL
  4. GABAPENTIN. [Concomitant]
     Active Substance: GABAPENTIN
  5. DULOXETINE. [Concomitant]
     Active Substance: DULOXETINE
  6. LOSARTAN. [Concomitant]
     Active Substance: LOSARTAN
  7. FLUTICASONE. [Concomitant]
     Active Substance: FLUTICASONE
  8. ROSUVASTATIN. [Concomitant]
     Active Substance: ROSUVASTATIN
  9. MAXALT [Concomitant]
     Active Substance: RIZATRIPTAN BENZOATE
  10. IBUPROFEN. [Concomitant]
     Active Substance: IBUPROFEN
  11. CYMBALTA [Concomitant]
     Active Substance: DULOXETINE HYDROCHLORIDE
  12. SOMA [Concomitant]
     Active Substance: CARISOPRODOL
  13. ELIQUIS [Concomitant]
     Active Substance: APIXABAN
  14. AZITHROMYCIN ANHYDROUS. [Concomitant]
     Active Substance: AZITHROMYCIN ANHYDROUS
  15. WELLBUTRIN [Concomitant]
     Active Substance: BUPROPION HYDROCHLORIDE
  16. VIRAMUNE [Concomitant]
     Active Substance: NEVIRAPINE
  17. MORPHINE SULFATE. [Concomitant]
     Active Substance: MORPHINE SULFATE
  18. ALDACTONE [Concomitant]
     Active Substance: SPIRONOLACTONE
  19. ZOVIRAX [Concomitant]
     Active Substance: ACYCLOVIR
  20. VALIUM [Concomitant]
     Active Substance: DIAZEPAM
  21. MARINOL [Concomitant]
     Active Substance: DRONABINOL
  22. ZETIA [Concomitant]
     Active Substance: EZETIMIBE
  23. CRESTOR [Concomitant]
     Active Substance: ROSUVASTATIN CALCIUM
  24. VITAMIN C [Concomitant]
     Active Substance: ASCORBIC ACID
  25. TENORMIN [Concomitant]
     Active Substance: ATENOLOL
  26. HYDROCODONE/ACETAMINOPHEN [Concomitant]
     Active Substance: ACETAMINOPHEN\HYDROCODONE
  27. HYDROCORT BUTYRATE [Concomitant]
     Active Substance: HYDROCORTISONE BUTYRATE
  28. AMOXICILLIN + CLAV. POTASSIUM [Concomitant]
     Active Substance: AMOXICILLIN\CLAVULANATE POTASSIUM
  29. CEPHALEXIN HCL [Concomitant]
     Active Substance: CEPHALEXIN HYDROCHLORIDE
  30. TRUVADA [Suspect]
     Active Substance: EMTRICITABINE\TENOFOVIR DISOPROXIL FUMARATE
     Indication: HIV INFECTION
     Dosage: UNK
     Route: 048
     Dates: start: 20100706, end: 20140302
  31. PENICILLIN?VK [Concomitant]
     Active Substance: PENICILLIN V POTASSIUM
  32. ROPINIROLE. [Concomitant]
     Active Substance: ROPINIROLE
  33. OPANA [Concomitant]
     Active Substance: OXYMORPHONE HYDROCHLORIDE
  34. VIBRAMYCIN [DOXYCYCLINE CALCIUM] [Concomitant]
  35. TRICOR [Concomitant]
     Active Substance: FENOFIBRATE
  36. CLARITHROMYCIN. [Concomitant]
     Active Substance: CLARITHROMYCIN
  37. FLUOROURACIL. [Concomitant]
     Active Substance: FLUOROURACIL
  38. NIASPAN [Concomitant]
     Active Substance: NIACIN
  39. VIRAMUNE XR [Concomitant]
     Active Substance: NEVIRAPINE
  40. LOVAZA [Concomitant]
     Active Substance: OMEGA-3-ACID ETHYL ESTERS
  41. ALPRAZOLAM. [Concomitant]
     Active Substance: ALPRAZOLAM
  42. REQUIP [Concomitant]
     Active Substance: ROPINIROLE HYDROCHLORIDE
  43. COLACE [Concomitant]
     Active Substance: DOCUSATE SODIUM
  44. DOLOPHINE [Concomitant]
     Active Substance: METHADONE HYDROCHLORIDE

REACTIONS (12)
  - Anxiety [Unknown]
  - Pain [Not Recovered/Not Resolved]
  - Chronic kidney disease [Not Recovered/Not Resolved]
  - Economic problem [Not Recovered/Not Resolved]
  - Chronic kidney disease [Not Recovered/Not Resolved]
  - Osteoporosis [Not Recovered/Not Resolved]
  - Cardiac failure [Not Recovered/Not Resolved]
  - Bone density decreased [Unknown]
  - Proteinuria [Unknown]
  - Emotional distress [Not Recovered/Not Resolved]
  - Renal failure [Unknown]
  - Anhedonia [Unknown]

NARRATIVE: CASE EVENT DATE: 20110624
